FAERS Safety Report 11880044 (Version 1)
Quarter: 2015Q4

REPORT INFORMATION
  Report Type: Report from Study
  Country: NL (occurrence: NL)
  Receive Date: 20151230
  Receipt Date: 20151230
  Transmission Date: 20160305
  Serious: Yes (Other)
  Sender: FDA-Public Use
  Company Number: PHHY2015NL170275

PATIENT
  Sex: Female

DRUGS (1)
  1. LDK378 [Suspect]
     Active Substance: CERITINIB
     Indication: PRODUCT USED FOR UNKNOWN INDICATION
     Dosage: UNK
     Route: 065
     Dates: start: 20140801, end: 20141001

REACTIONS (1)
  - Disease progression [Unknown]
